FAERS Safety Report 5918831-5 (Version None)
Quarter: 2008Q4

REPORT INFORMATION
  Report Type: 
  Country: None (occurrence: None)
  Receive Date: 20081015
  Receipt Date: 20081002
  Transmission Date: 20090506
  Serious: Yes (Other)
  Sender: FDA-Public Use
  Company Number: GB-AMGEN-US311363

PATIENT
  Sex: Female

DRUGS (5)
  1. ENBREL [Suspect]
     Indication: DRUG USE FOR UNKNOWN INDICATION
     Route: 065
  2. LEVOTHYROXINE SODIUM [Concomitant]
     Dosage: UNKNOWN
     Route: 065
  3. ASPIRIN [Concomitant]
     Dosage: UNKNOWN
     Route: 065
  4. SULFASALAZINE [Concomitant]
     Dosage: UNKNOWN
     Route: 065
  5. IRON [Concomitant]
     Dosage: UNKNOWN
     Route: 065

REACTIONS (1)
  - HYSTERECTOMY [None]
